FAERS Safety Report 4626927-3 (Version None)
Quarter: 2005Q2

REPORT INFORMATION
  Report Type: 
  Country: None (occurrence: None)
  Receive Date: 20050405
  Receipt Date: 20040817
  Transmission Date: 20051028
  Serious: Yes (Other)
  Sender: FDA-Public Use
  Company Number: GSK27988

PATIENT
  Age: 22 Year
  Sex: Female

DRUGS (1)
  1. TUMS E-X TABLETS, PEPPERMINT [Suspect]
     Indication: DRUG USE FOR UNKNOWN INDICATION
     Dosage: 750MG PER DAY
     Route: 048
     Dates: end: 20040801

REACTIONS (3)
  - DRUG EXPOSURE DURING PREGNANCY [None]
  - HAEMATEMESIS [None]
  - HAEMATOCHEZIA [None]
